FAERS Safety Report 4482694-8 (Version None)
Quarter: 2004Q4

REPORT INFORMATION
  Report Type: 
  Country: None (occurrence: None)
  Receive Date: 20041022
  Receipt Date: 20040825
  Transmission Date: 20050328
  Serious: Yes (Other)
  Sender: FDA-Public Use
  Company Number: PHEH2004US09248

PATIENT
  Age: 59 Year
  Sex: Male

DRUGS (1)
  1. DIOVAN HCT [Suspect]
     Dosage: ONE TABLET
     Route: 048
     Dates: start: 20040802

REACTIONS (3)
  - BONE DENSITY DECREASED [None]
  - GINGIVAL HYPERPLASIA [None]
  - TOOTH LOSS [None]
